FAERS Safety Report 17092832 (Version 1)
Quarter: 2019Q4

REPORT INFORMATION
  Report Type: Spontaneous
  Country: NL (occurrence: NL)
  Receive Date: 20191129
  Receipt Date: 20191129
  Transmission Date: 20200122
  Serious: No
  Sender: FDA-Public Use
  Company Number: NL-LUPIN PHARMACEUTICALS INC.-2019-03481

PATIENT
  Age: 46 Year
  Sex: Female

DRUGS (1)
  1. CALCIUM [Suspect]
     Active Substance: CALCIUM
     Indication: PRODUCT USED FOR UNKNOWN INDICATION
     Dosage: 1.5 MILLILITER, UNK  (FACIAL DERMAL FILLER INJECTIONS FOR HOLLOW TEMPLES)
     Route: 065

REACTIONS (1)
  - Ischaemia [Recovered/Resolved]
